FAERS Safety Report 17691071 (Version 1)
Quarter: 2020Q2

REPORT INFORMATION
  Report Type: Report from Study
  Country: US (occurrence: US)
  Receive Date: 20200422
  Receipt Date: 20200422
  Transmission Date: 20200714
  Serious: No
  Sender: FDA-Public Use
  Company Number: NVSC2020US106676

PATIENT
  Sex: Male

DRUGS (1)
  1. ENTRESTO [Suspect]
     Active Substance: SACUBITRIL\VALSARTAN
     Indication: VENTRICULAR EXTRASYSTOLES
     Dosage: 96/103 MG HALF TABLET, BID
     Route: 048

REACTIONS (2)
  - Product prescribing error [Unknown]
  - Wrong technique in product usage process [Unknown]
